FAERS Safety Report 11080508 (Version 2)
Quarter: 2015Q3

REPORT INFORMATION
  Report Type: Report from Study
  Country: US (occurrence: US)
  Receive Date: 20150501
  Receipt Date: 20150715
  Transmission Date: 20151125
  Serious: Yes (Other)
  Sender: FDA-Public Use
  Company Number: US-ROCHE-1570315

PATIENT
  Age: 55 Year
  Sex: Female
  Weight: 60.38 kg

DRUGS (6)
  1. OMALIZUMAB [Suspect]
     Active Substance: OMALIZUMAB
     Indication: ASTHMA
     Dosage: Q2S, DATE OF LAST DOSE PRIOR TO EVENT: 03/FEB/2015
     Route: 058
     Dates: start: 20140519
  2. PAXIL (UNITED STATES) [Concomitant]
     Route: 065
     Dates: start: 20120326
  3. SINGULAIR [Concomitant]
     Active Substance: MONTELUKAST SODIUM
     Route: 065
     Dates: start: 20100105
  4. FLONASE (UNITED STATES) [Concomitant]
     Route: 065
     Dates: start: 20060516
  5. ALLEGRA [Concomitant]
     Active Substance: FEXOFENADINE HYDROCHLORIDE
     Route: 065
     Dates: start: 20051008
  6. PROTONIX (UNITED STATES) [Concomitant]
     Route: 065
     Dates: start: 20061010

REACTIONS (2)
  - Osteoporosis [Recovering/Resolving]
  - Rib fracture [Recovering/Resolving]

NARRATIVE: CASE EVENT DATE: 20150205
